FAERS Safety Report 10331043 (Version 1)
Quarter: 2014Q3

REPORT INFORMATION
  Report Type: Report from Study
  Country: GB (occurrence: GB)
  Receive Date: 20140722
  Receipt Date: 20140722
  Transmission Date: 20150326
  Serious: Yes (Death)
  Sender: FDA-Public Use
  Company Number: GB-ASTELLAS-2014US008603

PATIENT
  Age: 75 Year
  Sex: Male

DRUGS (5)
  1. DOMPERIDONE [Concomitant]
     Active Substance: DOMPERIDONE
     Indication: BRONCHIAL CARCINOMA
     Dosage: 20 UNIT NOT PROVIDED, UNKNOWN FREQ.
     Route: 048
     Dates: start: 20130614
  2. LOPERAMIDE [Concomitant]
     Active Substance: LOPERAMIDE
     Indication: BRONCHIAL CARCINOMA
     Dosage: 2 UNIT NOT PROVIDED, UNKNOWN FREQ.
     Route: 048
     Dates: start: 20130614
  3. ERLOTINIB [Suspect]
     Active Substance: ERLOTINIB
     Indication: BRONCHIAL CARCINOMA
     Dosage: 150 UNIT NOT REPORTED, UNKNOWN FREQ.
     Route: 048
     Dates: end: 20130614
  4. DOXYCYCLINE. [Concomitant]
     Active Substance: DOXYCYCLINE
     Indication: BRONCHIAL CARCINOMA
     Dosage: 100 UNIT NOT PROVIDED, UNKNOWN FREQ.
     Route: 048
     Dates: end: 20130614
  5. DIPROBASE                          /01132701/ [Concomitant]
     Indication: PRODUCT USED FOR UNKNOWN INDICATION
     Dosage: UNK UNK, UNKNOWN FREQ.
     Route: 065

REACTIONS (1)
  - Death [Fatal]
